FAERS Safety Report 6342100-5 (Version None)
Quarter: 2009Q3

REPORT INFORMATION
  Report Type: 
  Country: None (occurrence: None)
  Receive Date: 20090904
  Receipt Date: 20090904
  Transmission Date: 20100115
  Serious: Yes (Hospitalization)
  Sender: FDA-Public Use
  Company Number: None

PATIENT
  Sex: Male
  Weight: 100.7 kg

DRUGS (8)
  1. CYCLOPHOSPHAMIDE [Suspect]
     Dosage: 2260 MG
  2. CYTARABINE [Suspect]
     Dosage: 1358 MG
  3. DEXAMETHASONE [Suspect]
     Dosage: 336 MG
  4. DOXORUBICIN HCL [Suspect]
     Dosage: 168 MG
  5. METHOTREXATE [Suspect]
     Dosage: 45 MG
  6. PEG-L ASPARAGINASE (K-H) [Suspect]
     Dosage: 5600 MILLION IU
  7. THIOGUANINE [Suspect]
     Dosage: 5880 MG
  8. VINCRISTINE SULFATE [Suspect]
     Dosage: 10 MG

REACTIONS (4)
  - ASTHENIA [None]
  - FATIGUE [None]
  - NEUTROPENIA [None]
  - PANCREATITIS [None]
